FAERS Safety Report 6338223-7 (Version None)
Quarter: 2009Q3

REPORT INFORMATION
  Report Type: 
  Country: None (occurrence: None)
  Receive Date: 20090902
  Receipt Date: 20090825
  Transmission Date: 20100115
  Serious: Yes (Hospitalization)
  Sender: FDA-Public Use
  Company Number: FI-SANOFI-SYNTHELABO-A01200908984

PATIENT
  Sex: Female

DRUGS (2)
  1. KYTRIL [Concomitant]
     Indication: PREMEDICATION
     Dosage: UNK
     Route: 065
     Dates: start: 20090824, end: 20090824
  2. ELOXATIN [Suspect]
     Indication: OVARIAN CANCER
     Route: 042
     Dates: start: 20090824, end: 20090824

REACTIONS (2)
  - C-REACTIVE PROTEIN INCREASED [None]
  - PYREXIA [None]
